FAERS Safety Report 18511098 (Version 1)
Quarter: 2020Q4

REPORT INFORMATION
  Report Type: Spontaneous
  Country: FI (occurrence: FI)
  Receive Date: 20201117
  Receipt Date: 20201117
  Transmission Date: 20210114
  Serious: Yes (Death)
  Sender: FDA-Public Use
  Company Number: FI-BAXTER-2020BAX023057

PATIENT
  Age: 40 Year
  Sex: Female

DRUGS (1)
  1. DOXIL [Suspect]
     Active Substance: DOXORUBICIN HYDROCHLORIDE
     Indication: GASTROINTESTINAL LYMPHOMA
     Route: 065

REACTIONS (2)
  - Cardiomegaly [Fatal]
  - Sudden death [Fatal]

NARRATIVE: CASE EVENT DATE: 2008
